FAERS Safety Report 4585318-4 (Version None)
Quarter: 2005Q1

REPORT INFORMATION
  Report Type: 
  Country: None (occurrence: None)
  Receive Date: 20050214
  Receipt Date: 20050201
  Transmission Date: 20050727
  Serious: Yes (Hospitalization, Other)
  Sender: FDA-Public Use
  Company Number: 2005023435

PATIENT
  Sex: Female
  Weight: 102.0593 kg

DRUGS (6)
  1. NORVASC [Suspect]
     Indication: HYPERTENSION
     Dosage: SEE IMAGE
     Route: 048
     Dates: start: 20040101
  2. NORVASC [Suspect]
     Indication: HYPERTENSION
     Dosage: SEE IMAGE
     Route: 048
     Dates: start: 20040801
  3. HEBALIFE PRODUCTS (HERBAL EXTRACTS NOS) [Concomitant]
  4. VITAMINS [Concomitant]
  5. COUGH AND COLD PREPARATIONS [Concomitant]
  6. DIURETICS [Concomitant]

REACTIONS (14)
  - BLOOD PRESSURE SYSTOLIC INCREASED [None]
  - BREAST CANCER STAGE I [None]
  - CARDIAC DISORDER [None]
  - COLON CANCER [None]
  - CONFUSIONAL STATE [None]
  - DIZZINESS [None]
  - DRUG INTERACTION [None]
  - ENDOMETRIOSIS [None]
  - FLUID RETENTION [None]
  - INFLAMMATION [None]
  - LYMPHADENOPATHY [None]
  - OEDEMA PERIPHERAL [None]
  - UTERINE CANCER [None]
  - UTERINE ENLARGEMENT [None]
